FAERS Safety Report 4661144-2 (Version None)
Quarter: 2005Q2

REPORT INFORMATION
  Report Type: 
  Country: None (occurrence: None)
  Receive Date: 20050511
  Receipt Date: 20050216
  Transmission Date: 20051028
  Serious: Yes (Death, Other)
  Sender: FDA-Public Use
  Company Number: 2005013942

PATIENT
  Sex: Male

DRUGS (5)
  1. PREDNISONE [Suspect]
     Indication: ROSACEA
     Dosage: 35 MG (35 MG, 1 IN 1 D), ORAL
     Route: 048
  2. ERYTHROMYCIN (ERYTHROMYCIN) [Suspect]
     Indication: ROSACEA
     Dosage: 1500 MG, 1 IN 1 D, ORAL
     Route: 048
  3. INSULIN [Suspect]
     Indication: ILL-DEFINED DISORDER
  4. MIFEPRISTONE (MIFEPRISTONE) [Suspect]
     Indication: ILL-DEFINED DISORDER
  5. DINOPROSTONE (DINOPROSTONE) [Suspect]
     Indication: ILL-DEFINED DISORDER

REACTIONS (6)
  - CAESAREAN SECTION [None]
  - DRUG EXPOSURE DURING PREGNANCY [None]
  - FOETAL ARRHYTHMIA [None]
  - FOETAL CARDIAC DISORDER [None]
  - INTRA-UTERINE DEATH [None]
  - OLIGOHYDRAMNIOS [None]
